FAERS Safety Report 7664500-3 (Version None)
Quarter: 2011Q3

REPORT INFORMATION
  Report Type: 
  Country: None (occurrence: None)
  Receive Date: 20110806
  Receipt Date: 20110223
  Transmission Date: 20111222
  Serious: No
  Sender: FDA-Public Use
  Company Number: US-ABBOTT-11P-163-0706958-00

PATIENT
  Sex: Male

DRUGS (2)
  1. NIASPAN [Suspect]
     Indication: BLOOD CHOLESTEROL INCREASED
     Dosage: AT BEDTIME
     Route: 048
     Dates: start: 20100901
  2. UNSPECIFIED HTN MEDS [Concomitant]
     Indication: HYPERTENSION

REACTIONS (4)
  - NASOPHARYNGITIS [None]
  - FLUSHING [None]
  - MIDDLE EAR EFFUSION [None]
  - EAR PAIN [None]
